FAERS Safety Report 8380636-6 (Version None)
Quarter: 2012Q2

REPORT INFORMATION
  Report Type: 
  Country: None (occurrence: None)
  Receive Date: 20120523
  Receipt Date: 20120514
  Transmission Date: 20120825
  Serious: Yes (Hospitalization, Other)
  Sender: FDA-Public Use
  Company Number: US-ACTELION-A-NJ2010-41396

PATIENT

DRUGS (4)
  1. TRACLEER [Suspect]
     Indication: PULMONARY ARTERIAL HYPERTENSION
     Dosage: UNK
     Route: 048
     Dates: start: 20040605
  2. COZAAR [Concomitant]
  3. ALDACTONE [Concomitant]
  4. COUMADIN [Suspect]

REACTIONS (10)
  - TOXICITY TO VARIOUS AGENTS [None]
  - MENTAL STATUS CHANGES [None]
  - OSTEOARTHRITIS [None]
  - INTERNATIONAL NORMALISED RATIO INCREASED [None]
  - NAUSEA [None]
  - DEHYDRATION [None]
  - ANAEMIA [None]
  - RENAL DISORDER [None]
  - NECK PAIN [None]
  - RENAL FAILURE [None]
